FAERS Safety Report 5062001-2 (Version None)
Quarter: 2006Q3

REPORT INFORMATION
  Report Type: 
  Country: None (occurrence: None)
  Receive Date: 20060719
  Receipt Date: 20060719
  Transmission Date: 20061208
  Serious: Yes (Disabling, Other)
  Sender: FDA-Public Use
  Company Number: None

PATIENT
  Age: 11 Year
  Sex: Male

DRUGS (1)
  1. COMPOUND W FREEZE OFF [Suspect]
     Indication: SKIN PAPILLOMA
     Dosage: 003
     Dates: start: 20060623

REACTIONS (4)
  - ACCIDENTAL EXPOSURE [None]
  - APPLICATION SITE BURN [None]
  - APPLICATION SITE REACTION [None]
  - BURNS SECOND DEGREE [None]
